FAERS Safety Report 7591398 (Version 2)
Quarter: 2012Q4

REPORT INFORMATION
  Report Type: 
  Country: US (occurrence: US)
  Receive Date: 20100917
  Receipt Date: 20120912
  Transmission Date: 20130627
  Serious: No
  Sender: FDA-Public Use
  Company Number: US-ASTRAZENECA-2009SE13275

PATIENT
  Age: 60 Year
  Sex: Female

DRUGS (1)
  1. SEROQUEL [Suspect]
     Dosage: SEROQUEL 100 MG AND 400 MG
     Route: 048

REACTIONS (4)
  - Insomnia [Unknown]
  - Abdominal discomfort [Unknown]
  - Obsessive-compulsive disorder [Unknown]
  - Drug dose omission [Unknown]
